FAERS Safety Report 23113594 (Version 1)
Quarter: 2023Q4

REPORT INFORMATION
  Report Type: Spontaneous
  Country: US (occurrence: US)
  Receive Date: 20231027
  Receipt Date: 20231027
  Transmission Date: 20240110
  Serious: No
  Sender: FDA-Public Use
  Company Number: US-PADAGIS-2023PAD01503

PATIENT

DRUGS (2)
  1. TESTOSTERONE CYPIONATE [Suspect]
     Active Substance: TESTOSTERONE CYPIONATE
     Indication: Blood testosterone decreased
     Dosage: 0.25 ML, WEEKLY
     Route: 065
     Dates: start: 202308, end: 202309
  2. TESTOSTERONE CYPIONATE [Suspect]
     Active Substance: TESTOSTERONE CYPIONATE
     Dosage: 0.5 ML, WEEKLY
     Route: 065
     Dates: start: 202309

REACTIONS (5)
  - Eye disorder [Unknown]
  - Injection site haemorrhage [Unknown]
  - Injection site pain [Not Recovered/Not Resolved]
  - Multiple use of single-use product [Unknown]
  - Product physical consistency issue [Unknown]

NARRATIVE: CASE EVENT DATE: 20230801
